FAERS Safety Report 8104886-9 (Version None)
Quarter: 2012Q1

REPORT INFORMATION
  Report Type: 
  Country: None (occurrence: None)
  Receive Date: 20120201
  Receipt Date: 20120131
  Transmission Date: 20120608
  Serious: Yes (Other)
  Sender: FDA-Public Use
  Company Number: US-GLAXOSMITHKLINE-A0915610A

PATIENT
  Age: 39 Year
  Sex: Male
  Weight: 168.2 kg

DRUGS (9)
  1. LOTREL [Concomitant]
  2. AVANDIA [Suspect]
     Indication: DIABETES MELLITUS
     Dosage: 8MG PER DAY
     Route: 048
     Dates: start: 20090601, end: 20100616
  3. LYRICA [Concomitant]
  4. DIAZEPAM [Concomitant]
  5. ZOCOR [Concomitant]
  6. ALPRAZOLAM [Concomitant]
  7. EFFIENT [Concomitant]
  8. METFORMIN HCL [Concomitant]
  9. ZOLOFT [Concomitant]

REACTIONS (2)
  - MYOCARDIAL INFARCTION [None]
  - CORONARY ARTERY DISEASE [None]
